FAERS Safety Report 6167670-1 (Version None)
Quarter: 2009Q2

REPORT INFORMATION
  Report Type: 
  Country: None (occurrence: None)
  Receive Date: 20090424
  Receipt Date: 20090326
  Transmission Date: 20091009
  Serious: Yes (Other)
  Sender: FDA-Public Use
  Company Number: US-GENENTECH-280211

PATIENT

DRUGS (1)
  1. AVASTIN [Suspect]
     Indication: MYELOFIBROSIS

REACTIONS (4)
  - AMNESIA [None]
  - APHASIA [None]
  - ASTHENIA [None]
  - CONFUSIONAL STATE [None]
